FAERS Safety Report 7481114-9 (Version None)
Quarter: 2011Q2

REPORT INFORMATION
  Report Type: 
  Country: None (occurrence: None)
  Receive Date: 20110504
  Receipt Date: 20110203
  Transmission Date: 20111010
  Serious: Yes (Death, Hospitalization)
  Sender: FDA-Public Use
  Company Number: DSA_44597_2010

PATIENT
  Sex: Female

DRUGS (18)
  1. TRAZODONE HCL [Concomitant]
  2. VALIUM [Concomitant]
  3. LEVOTHYROXINE SODIUM [Concomitant]
  4. ATIVAN [Concomitant]
  5. TYLENOL REGULAR [Concomitant]
  6. ZYPREXA [Concomitant]
  7. FLAGYL [Concomitant]
  8. METOPROLOL TARTRATE [Concomitant]
  9. LUMIGAN [Concomitant]
  10. CATAPRES /00171101/ [Concomitant]
  11. HALDOL [Concomitant]
  12. BOOST [Concomitant]
  13. MILK OF MAGNESIA TAB [Concomitant]
  14. DULCOLAX [Concomitant]
  15. KEFLEX [Concomitant]
  16. XENAZINE [Suspect]
     Indication: HUNTINGTON'S DISEASE
     Dosage: (50 MG BID ORAL)
     Route: 048
     Dates: start: 20090202, end: 20101227
  17. CELEXA [Concomitant]
  18. LISINOPRIL [Concomitant]

REACTIONS (10)
  - DYSPHAGIA [None]
  - NORMOCHROMIC NORMOCYTIC ANAEMIA [None]
  - INTERNATIONAL NORMALISED RATIO INCREASED [None]
  - THROMBOCYTOSIS [None]
  - HYPOVITAMINOSIS [None]
  - MALNUTRITION [None]
  - HYPERGLYCAEMIA [None]
  - DIABETES MELLITUS [None]
  - PNEUMONIA ASPIRATION [None]
  - SINUS TACHYCARDIA [None]
